FAERS Safety Report 8153090-7 (Version None)
Quarter: 2012Q1

REPORT INFORMATION
  Report Type: 
  Country: None (occurrence: None)
  Receive Date: 20120221
  Receipt Date: 20120210
  Transmission Date: 20120608
  Serious: Yes (Death, Hospitalization, Other)
  Sender: FDA-Public Use
  Company Number: US-CELGENEUS-163-21880-12021342

PATIENT
  Age: 59 Year
  Sex: Female

DRUGS (4)
  1. CYTOXAN [Concomitant]
     Route: 065
     Dates: start: 20101101
  2. REVLIMID [Suspect]
     Indication: MULTIPLE MYELOMA
     Dosage: 25 MILLIGRAM
     Route: 048
     Dates: start: 20080401, end: 20081001
  3. REVLIMID [Suspect]
     Dosage: 25 MILLIGRAM
     Route: 048
     Dates: start: 20101101, end: 20110701
  4. DEXAMETHASONE [Concomitant]
     Route: 065
     Dates: start: 20101101

REACTIONS (3)
  - PANCYTOPENIA [None]
  - SEPSIS [None]
  - MULTIPLE MYELOMA [None]
